FAERS Safety Report 20543205 (Version 1)
Quarter: 2022Q1

REPORT INFORMATION
  Report Type: Spontaneous
  Country: US (occurrence: None)
  Receive Date: 20220302
  Receipt Date: 20220302
  Transmission Date: 20220423
  Serious: No
  Sender: FDA-Public Use
  Company Number: US-ROCHE-2834167

PATIENT
  Age: 74 Year
  Sex: Female
  Weight: 68.100 kg

DRUGS (5)
  1. NUTROPIN AQ [Suspect]
     Active Substance: SOMATROPIN
     Indication: Senile osteoporosis
     Dosage: STRENGTH 10 MG/2ML
     Route: 058
     Dates: start: 20170112
  2. BYDUREON [Concomitant]
     Active Substance: EXENATIDE
     Route: 058
     Dates: start: 20170103, end: 20171113
  3. LANTUS SOLOSTAR [Concomitant]
     Active Substance: INSULIN GLARGINE
     Route: 058
     Dates: start: 20170103, end: 20171113
  4. LIPITOR [Concomitant]
     Active Substance: ATORVASTATIN CALCIUM
     Route: 048
     Dates: start: 20170103
  5. METOCLOPRAMIDE [Concomitant]
     Active Substance: METOCLOPRAMIDE

REACTIONS (2)
  - Off label use [Unknown]
  - Dizziness [Unknown]

NARRATIVE: CASE EVENT DATE: 20210428
